FAERS Safety Report 4724043-3 (Version None)
Quarter: 2005Q3

REPORT INFORMATION
  Report Type: 
  Country: None (occurrence: None)
  Receive Date: 20050722
  Receipt Date: 20050708
  Transmission Date: 20060218
  Serious: Yes (Life-Threatening, Hospitalization, Other)
  Sender: FDA-Public Use
  Company Number: JP-2005-012299

PATIENT
  Age: 55 Year
  Sex: Male
  Weight: 50 kg

DRUGS (1)
  1. BETASERON [Suspect]
     Indication: MULTIPLE SCLEROSIS
     Dosage: 8 MIU EVERY 2 D SUBCUTANEOUS
     Route: 058
     Dates: start: 20001212, end: 20050601

REACTIONS (13)
  - ANAEMIA [None]
  - ANTI-SS-A ANTIBODY POSITIVE [None]
  - CYTOMEGALOVIRUS ANTIGEN POSITIVE [None]
  - DECREASED APPETITE [None]
  - DEHYDRATION [None]
  - DNA ANTIBODY POSITIVE [None]
  - HISTIOCYTOSIS HAEMATOPHAGIC [None]
  - INFECTION [None]
  - PLATELET COUNT DECREASED [None]
  - PYREXIA [None]
  - SERUM FERRITIN INCREASED [None]
  - SHOCK [None]
  - WHITE BLOOD CELL COUNT DECREASED [None]
